FAERS Safety Report 13356014 (Version 1)
Quarter: 2017Q1

REPORT INFORMATION
  Report Type: Spontaneous
  Country: DZ (occurrence: DZ)
  Receive Date: 20170321
  Receipt Date: 20170321
  Transmission Date: 20170429
  Serious: Yes (Hospitalization)
  Sender: FDA-Public Use
  Company Number: DZ-SA-2017SA044762

PATIENT
  Age: 65 Year
  Sex: Female

DRUGS (2)
  1. CALCIPARINE [Suspect]
     Active Substance: HEPARIN CALCIUM
     Route: 065
     Dates: start: 201703, end: 201703
  2. LOVENOX [Suspect]
     Active Substance: ENOXAPARIN SODIUM
     Route: 058
     Dates: start: 201703, end: 201703

REACTIONS (2)
  - Thrombocytopenia [Recovered/Resolved]
  - Renal failure [Unknown]

NARRATIVE: CASE EVENT DATE: 201703
